FAERS Safety Report 6646107-X (Version None)
Quarter: 2010Q1

REPORT INFORMATION
  Report Type: 
  Country: None (occurrence: None)
  Receive Date: 20100323
  Receipt Date: 20100311
  Transmission Date: 20100710
  Serious: Yes (Hospitalization)
  Sender: FDA-Public Use
  Company Number: US-PFIZER INC-2010031204

PATIENT
  Sex: Male
  Weight: 96.5 kg

DRUGS (12)
  1. PREDNISONE [Suspect]
     Indication: PROSTATE CANCER
     Dosage: 5 MG, 2X/DAY
     Route: 048
     Dates: start: 20090901
  2. BLINDED *NO SUBJECT DRUG [Suspect]
     Indication: PROSTATE CANCER
     Dosage: 37.5 MG, 1X/DAY
     Route: 048
     Dates: start: 20090901, end: 20100310
  3. BLINDED *PLACEBO [Suspect]
     Indication: PROSTATE CANCER
     Dosage: 37.5 MG, 1X/DAY
     Route: 048
     Dates: start: 20090901, end: 20100310
  4. SUNITINIB MALATE [Suspect]
     Indication: PROSTATE CANCER
     Dosage: 37.5 MG, 1X/DAY
     Route: 048
     Dates: start: 20090901, end: 20100310
  5. ACETAMINOPHEN [Concomitant]
     Indication: ARTHRITIS
     Dosage: 500 MG, 2X/DAY
     Route: 048
     Dates: start: 20090810
  6. METFORMIN [Concomitant]
     Indication: DIABETES MELLITUS
     Dosage: 500 MG, 1X/DAY
     Route: 048
     Dates: start: 20040101
  7. GLYBURIDE [Concomitant]
     Indication: DIABETES MELLITUS
     Dosage: 5 MG, 2X/DAY
     Route: 048
     Dates: start: 20040101
  8. INSULIN [Concomitant]
     Indication: DIABETES MELLITUS
     Dosage: 16/20, INJECTION
     Dates: start: 20080101
  9. GOSERELIN [Concomitant]
     Indication: PROSTATE CANCER
     Dosage: 10.8 MG, EVERY 90 DAYS
     Route: 042
     Dates: start: 20041118
  10. KETOROLAC TROMETHAMINE [Concomitant]
     Indication: GLAUCOMA
     Dosage: UNK
     Route: 047
     Dates: start: 20091119
  11. LATANOPROST [Concomitant]
     Indication: GLAUCOMA
     Dosage: UNK
     Route: 047
     Dates: start: 20091119
  12. HYPROMELLOSE [Concomitant]
     Indication: GLAUCOMA
     Dosage: 2 DROPS, 4-6 TIMES
     Route: 047
     Dates: start: 20091119

REACTIONS (1)
  - CHEST PAIN [None]
